FAERS Safety Report 7897089-4 (Version None)
Quarter: 2011Q4

REPORT INFORMATION
  Report Type: 
  Country: None (occurrence: None)
  Receive Date: 20111107
  Receipt Date: 20111027
  Transmission Date: 20120403
  Serious: No
  Sender: FDA-Public Use
  Company Number: JP-JNJFOC-20111012962

PATIENT

DRUGS (2)
  1. OXYCODONE HCL [Concomitant]
     Indication: CANCER PAIN
     Dosage: TWO 5 MG TABLETS
     Route: 048
  2. FENTANYL-100 [Suspect]
     Indication: PAIN
     Route: 062

REACTIONS (1)
  - DRUG PRESCRIBING ERROR [None]
